FAERS Safety Report 6098680-0 (Version None)
Quarter: 2009Q1

REPORT INFORMATION
  Report Type: 
  Country: None (occurrence: None)
  Receive Date: 20090302
  Receipt Date: 20090219
  Transmission Date: 20090719
  Serious: Yes (Hospitalization)
  Sender: FDA-Public Use
  Company Number: US-JNJFOC-20090205300

PATIENT
  Sex: Female
  Weight: 56.7 kg

DRUGS (17)
  1. REMICADE [Suspect]
     Indication: RHEUMATOID ARTHRITIS
  2. ARAVA [Concomitant]
     Indication: RHEUMATOID ARTHRITIS
  3. ZEGERID [Concomitant]
     Indication: ULCER
  4. PLAQUENIL [Concomitant]
     Indication: RHEUMATOID ARTHRITIS
  5. FOLTX [Concomitant]
     Indication: CARDIAC DISORDER
  6. NIACIN [Concomitant]
     Indication: BLOOD CHOLESTEROL INCREASED
  7. ZETIA [Concomitant]
     Indication: BLOOD CHOLESTEROL INCREASED
  8. TRICOR [Concomitant]
     Indication: HYPERTENSION
  9. COREG CR [Concomitant]
     Indication: HYPERTENSION
  10. PLAVIX [Concomitant]
     Indication: ANTICOAGULANT THERAPY
  11. PHOSLO [Concomitant]
     Indication: RENAL DISORDER
  12. XYZAL [Concomitant]
     Indication: MULTIPLE ALLERGIES
  13. EVISTA [Concomitant]
     Indication: OSTEOPOROSIS
  14. IRON INFUSION [Concomitant]
     Indication: ANAEMIA
  15. ARANESP [Concomitant]
     Indication: BLOOD COUNT
  16. VICODIN [Concomitant]
     Indication: PAIN
  17. FENTANYL TRANSDERMAL SYSTEM [Concomitant]
     Indication: RHEUMATOID ARTHRITIS

REACTIONS (2)
  - DIVERTICULITIS [None]
  - FUNGAL INFECTION [None]
